FAERS Safety Report 10460619 (Version 3)
Quarter: 2014Q4

REPORT INFORMATION
  Report Type: Spontaneous
  Country: US (occurrence: US)
  Receive Date: 20140918
  Receipt Date: 20141107
  Transmission Date: 20150528
  Serious: Yes (Hospitalization)
  Sender: FDA-Public Use
  Company Number: US-UNITED THERAPEUTICS-UNT-2014-006856

PATIENT
  Age: 46 Year
  Sex: Female
  Weight: 101.59 kg

DRUGS (1)
  1. REMODULIN [Suspect]
     Active Substance: TREPROSTINIL
     Indication: COR PULMONALE CHRONIC
     Dosage: 0.042 ?G/KG, CONTINUING
     Route: 041
     Dates: start: 20101122

REACTIONS (6)
  - Pelvic haematoma [Recovered/Resolved]
  - Hysterectomy [Recovered/Resolved]
  - Malaise [Recovered/Resolved]
  - Blood pressure abnormal [Recovered/Resolved]
  - Haematoma [Recovered/Resolved]
  - Salpingectomy [Recovered/Resolved]

NARRATIVE: CASE EVENT DATE: 20140807
